FAERS Safety Report 15685573 (Version 2)
Quarter: 2019Q2

REPORT INFORMATION
  Report Type: Spontaneous
  Country: IT (occurrence: IT)
  Receive Date: 20181204
  Receipt Date: 20190408
  Transmission Date: 20190711
  Serious: Yes (Other)
  Sender: FDA-Public Use
  Company Number: IT-IMPAX LABORATORIES, LLC-2018-IPXL-03943

PATIENT
  Age: 70 Year
  Sex: Male

DRUGS (2)
  1. RYTARY [Suspect]
     Active Substance: CARBIDOPA\LEVODOPA
     Indication: PARKINSON^S DISEASE
     Dosage: DUODENAL INFUSION, UNK
     Dates: start: 201603
  2. RYTARY [Suspect]
     Active Substance: CARBIDOPA\LEVODOPA
     Dosage: GASTRIC INFUSION, UNK

REACTIONS (2)
  - Bezoar [Recovered/Resolved]
  - Duodenal ulcer [Recovered/Resolved]
